FAERS Safety Report 9691000 (Version 6)
Quarter: 2014Q1

REPORT INFORMATION
  Report Type: Spontaneous
  Country: US (occurrence: US)
  Receive Date: 20131115
  Receipt Date: 20140220
  Transmission Date: 20141002
  Serious: Yes (Hospitalization, Disabling, Other)
  Sender: FDA-Public Use
  Company Number: US-009507513-1205USA04579

PATIENT
  Sex: Female
  Weight: 58.5 kg

DRUGS (5)
  1. FOSAMAX [Suspect]
     Indication: OSTEOPOROSIS
     Dosage: 70 MG, QW
     Route: 048
     Dates: end: 200806
  2. FOSAMAX [Suspect]
     Indication: OSTEOPENIA
  3. FOSAMAX PLUS D [Suspect]
     Indication: OSTEOPOROSIS PROPHYLAXIS
     Dosage: 70 MG/2800 MG, UNK
     Route: 048
     Dates: start: 20080306, end: 2009
  4. FOSAMAX PLUS D [Suspect]
     Indication: OSTEOPENIA
  5. NORVASC [Concomitant]
     Indication: HYPERTENSION
     Dosage: 5/10 MG, QD
     Route: 048

REACTIONS (18)
  - Femur fracture [Recovered/Resolved]
  - Intramedullary rod insertion [Recovered/Resolved]
  - Crohn^s disease [Unknown]
  - Post procedural haemorrhage [Unknown]
  - Rotator cuff syndrome [Unknown]
  - Low turnover osteopathy [Not Recovered/Not Resolved]
  - Tooth disorder [Unknown]
  - Hyperlipidaemia [Unknown]
  - Wrist surgery [Unknown]
  - Osteoma [Unknown]
  - Tendonitis [Unknown]
  - Nerve compression [Unknown]
  - Lumbar spinal stenosis [Unknown]
  - Paraesthesia [Unknown]
  - Hypoaesthesia [Unknown]
  - Diverticulum [Unknown]
  - Scoliosis [Unknown]
  - Spinal osteoarthritis [Unknown]
